FAERS Safety Report 9778715 (Version 1)
Quarter: 2013Q4

REPORT INFORMATION
  Report Type: Spontaneous
  Country: US (occurrence: US)
  Receive Date: 20131223
  Receipt Date: 20131223
  Transmission Date: 20140711
  Serious: Yes (Other)
  Sender: FDA-Public Use
  Company Number: US-SA-2013SA133028

PATIENT
  Age: 79 Year
  Sex: Male

DRUGS (1)
  1. ALLEGRA-D [Suspect]
     Route: 048

REACTIONS (5)
  - Sleep apnoea syndrome [Unknown]
  - Nasal congestion [Unknown]
  - Feeling jittery [Unknown]
  - Nervousness [Unknown]
  - Insomnia [Unknown]
